FAERS Safety Report 19623020 (Version 1)
Quarter: 2021Q3

REPORT INFORMATION
  Report Type: Spontaneous
  Country: US (occurrence: US)
  Receive Date: 20210728
  Receipt Date: 20210728
  Transmission Date: 20211014
  Serious: No
  Sender: FDA-Public Use
  Company Number: US-GLAXOSMITHKLINE-US2021159342

PATIENT
  Sex: Male

DRUGS (2)
  1. FLONASE [Suspect]
     Active Substance: FLUTICASONE PROPIONATE
     Indication: PARANASAL SINUS DISCOMFORT
     Dosage: UNK
  2. FLONASE [Suspect]
     Active Substance: FLUTICASONE PROPIONATE
     Indication: SINUS CONGESTION

REACTIONS (6)
  - Drug effective for unapproved indication [Unknown]
  - Fatigue [Unknown]
  - Product use in unapproved indication [Unknown]
  - Insomnia [Unknown]
  - Condition aggravated [Unknown]
  - Dyspnoea [Unknown]
